FAERS Safety Report 15845299 (Version 1)
Quarter: 2019Q1

REPORT INFORMATION
  Report Type: Report from Study
  Country: GB (occurrence: GB)
  Receive Date: 20190119
  Receipt Date: 20190119
  Transmission Date: 20190417
  Serious: Yes (Hospitalization)
  Sender: FDA-Public Use
  Company Number: GB-IPSEN BIOPHARMACEUTICALS, INC.-2018-15967

PATIENT
  Sex: Female

DRUGS (1)
  1. SOMATULINE AUTOGEL 120MG [Suspect]
     Active Substance: LANREOTIDE ACETATE
     Indication: ACROMEGALY
     Dosage: PRE-FILLED SYRINGE INJECTED INTO LEFT THIGH AS HAD PAINFUL LUMPS ON HER BUTTOCKS FROM PREVIOUS INJEC
     Route: 058

REACTIONS (3)
  - Fall [Unknown]
  - Osteoarthritis [Unknown]
  - Injection site mass [Recovered/Resolved]
